FAERS Safety Report 17162269 (Version 1)
Quarter: 2019Q4

REPORT INFORMATION
  Report Type: Spontaneous
  Country: SE (occurrence: SE)
  Receive Date: 20191217
  Receipt Date: 20191217
  Transmission Date: 20200122
  Serious: Yes (Hospitalization)
  Sender: FDA-Public Use
  Company Number: SE-TEVA-2019-SE-1151310

PATIENT
  Age: 21 Year
  Sex: Female

DRUGS (3)
  1. ESCITALOPRAM [Suspect]
     Active Substance: ESCITALOPRAM OXALATE
     Dosage: 400 MG
     Route: 048
     Dates: start: 20190815, end: 20190815
  2. LERGIGAN (PROMETHAZINE HYDROCHLORIDE) [Suspect]
     Active Substance: PROMETHAZINE HYDROCHLORIDE
     Route: 048
     Dates: start: 20190815, end: 20190815
  3. CYMBALTA [Suspect]
     Active Substance: DULOXETINE HYDROCHLORIDE
     Route: 048
     Dates: start: 20190815, end: 20190815

REACTIONS (7)
  - Agitation [Unknown]
  - Miosis [Unknown]
  - Intentional overdose [Unknown]
  - Tachycardia [Unknown]
  - Hallucination [Unknown]
  - Intentional self-injury [Unknown]
  - Akathisia [Unknown]

NARRATIVE: CASE EVENT DATE: 20190815
